FAERS Safety Report 7451940-0 (Version None)
Quarter: 2011Q2

REPORT INFORMATION
  Report Type: 
  Country: None (occurrence: None)
  Receive Date: 20110502
  Receipt Date: 20110418
  Transmission Date: 20111010
  Serious: Yes (Life-Threatening, Hospitalization)
  Sender: FDA-Public Use
  Company Number: PHHY2011CA36232

PATIENT
  Age: 43 Year
  Sex: Male

DRUGS (2)
  1. FLUOROURACIL [Suspect]
     Indication: METASTASES TO LIVER
  2. FLUOROURACIL [Suspect]
     Indication: COLORECTAL CANCER
     Dosage: 3700 MG
     Route: 042

REACTIONS (2)
  - INAPPROPRIATE SCHEDULE OF DRUG ADMINISTRATION [None]
  - ACCIDENTAL POISONING [None]
